FAERS Safety Report 8460350 (Version 3)
Quarter: 2014Q1

REPORT INFORMATION
  Report Type: Spontaneous
  Country: US (occurrence: None)
  Receive Date: 20120308
  Receipt Date: 20140113
  Transmission Date: 20141002
  Serious: Yes (Hospitalization, Other)
  Sender: FDA-Public Use
  Company Number: JPI-P-019969

PATIENT
  Age: 78 Year
  Sex: Female
  Weight: 77.21 kg

DRUGS (9)
  1. XYREM [Suspect]
     Indication: CATAPLEXY
     Dosage: 7.5 GM (3.75 GM,2 IN 1 D),ORAL
     Route: 048
     Dates: start: 20020927
  2. LOSARTAN [Concomitant]
  3. BUMETANIDE [Concomitant]
  4. WARFARIN [Concomitant]
  5. MODAFINIL [Concomitant]
  6. HYDROXYZINE [Concomitant]
  7. ATORVASTATIN CALCIUM [Suspect]
     Indication: BLOOD CHOLESTEROL INCREASED
  8. CLARITIN (LORATADINE) [Concomitant]
  9. METOPROLOL (METOPROLOL TARTRATE) [Concomitant]

REACTIONS (9)
  - Urinary incontinence [None]
  - Eczema [None]
  - Drug hypersensitivity [None]
  - Hip arthroplasty [None]
  - Osteoarthritis [None]
  - Neurodermatitis [None]
  - Condition aggravated [None]
  - Cough [None]
  - Weight decreased [None]
